FAERS Safety Report 19165864 (Version 1)
Quarter: 2021Q2

REPORT INFORMATION
  Report Type: Spontaneous
  Country: JP (occurrence: JP)
  Receive Date: 20210421
  Receipt Date: 20210421
  Transmission Date: 20210717
  Serious: Yes (Death, Other)
  Sender: FDA-Public Use
  Company Number: JP-PFIZER INC-2021388767

PATIENT
  Age: 3 Year
  Sex: Female

DRUGS (4)
  1. DOXORUBICIN HCL [Suspect]
     Active Substance: DOXORUBICIN HYDROCHLORIDE
     Dosage: 2.6 MG/KG, CYCLIC
  2. CISPLATIN. [Suspect]
     Active Substance: CISPLATIN
     Indication: HEPATIC CANCER
     Dosage: 4 MG/KG, CYCLIC
  3. DOXORUBICIN HCL [Suspect]
     Active Substance: DOXORUBICIN HYDROCHLORIDE
     Indication: HEPATIC CANCER
     Dosage: 2 MG/KG, CYCLIC
  4. CISPLATIN. [Suspect]
     Active Substance: CISPLATIN
     Dosage: 5.2 MG/KG, CYCLIC

REACTIONS (3)
  - Necrosis [Unknown]
  - Haemorrhage [Unknown]
  - Neoplasm progression [Fatal]
